FAERS Safety Report 24587640 (Version 1)
Quarter: 2024Q4

REPORT INFORMATION
  Report Type: Spontaneous
  Country: US (occurrence: US)
  Receive Date: 20241107
  Receipt Date: 20241107
  Transmission Date: 20250114
  Serious: No
  Sender: ABBVIE
  Company Number: US-ABBVIE-5984787

PATIENT

DRUGS (2)
  1. BOTOX COSMETIC [Suspect]
     Active Substance: ONABOTULINUMTOXINA
     Indication: Skin wrinkling
     Dosage: TIME INTERVAL: AS NECESSARY: THREE AREAS WITH A TOTAL OF 40 UNITS
     Route: 065
     Dates: start: 202410, end: 202410
  2. BOTOX COSMETIC [Suspect]
     Active Substance: ONABOTULINUMTOXINA
     Indication: Skin wrinkling
     Dosage: TIME INTERVAL: AS NECESSARY: TWO UNITS ON EACH SIDE (TOTAL OF 4 UNITS).
     Route: 065
     Dates: start: 20241028, end: 20241028

REACTIONS (1)
  - Eyelid ptosis [Unknown]

NARRATIVE: CASE EVENT DATE: 20241001
